FAERS Safety Report 9878196 (Version 2)
Quarter: 2014Q1

REPORT INFORMATION
  Report Type: Spontaneous
  Country: FI (occurrence: FI)
  Receive Date: 20140206
  Receipt Date: 20140211
  Transmission Date: 20141002
  Serious: Yes (Other)
  Sender: FDA-Public Use
  Company Number: FI-PFIZER INC-2014031442

PATIENT
  Age: 9 Decade
  Sex: Male

DRUGS (1)
  1. LYRICA [Suspect]
     Dosage: 75 MG IN THE EVENING + 25 MG AT NIGHT IF WOKEN UP

REACTIONS (5)
  - Off label use [Unknown]
  - Angina pectoris [Unknown]
  - Dizziness [Unknown]
  - Fall [Unknown]
  - Personality change [Unknown]
